FAERS Safety Report 24561247 (Version 1)
Quarter: 2024Q4

REPORT INFORMATION
  Report Type: Spontaneous
  Country: JP (occurrence: JP)
  Receive Date: 20241029
  Receipt Date: 20241029
  Transmission Date: 20250115
  Serious: Yes (Other)
  Sender: APELLIS PHARMACEUTICALS
  Company Number: JP-BIOVITRUM-2024-JP-000953

PATIENT

DRUGS (1)
  1. PEGCETACOPLAN [Suspect]
     Active Substance: PEGCETACOPLAN
     Indication: Paroxysmal nocturnal haemoglobinuria
     Route: 058
     Dates: start: 20240115, end: 20240115

REACTIONS (3)
  - Blood pressure increased [Recovered/Resolved]
  - Injection site erythema [Recovered/Resolved]
  - Palpitations [Recovered/Resolved]

NARRATIVE: CASE EVENT DATE: 20240115
